FAERS Safety Report 5495785-X (Version None)
Quarter: 2007Q4

REPORT INFORMATION
  Report Type: 
  Country: None (occurrence: None)
  Receive Date: 20071025
  Receipt Date: 20061020
  Transmission Date: 20080405
  Serious: No
  Sender: FDA-Public Use
  Company Number: A0624401A

PATIENT
  Age: 36 Year
  Sex: Male

DRUGS (1)
  1. ADVAIR DISKUS 100/50 [Suspect]
     Indication: ASTHMA
     Dosage: 1PUFF PER DAY
     Route: 055
     Dates: start: 20020101

REACTIONS (4)
  - ASTHENIA [None]
  - HEART RATE DECREASED [None]
  - INSOMNIA [None]
  - PALPITATIONS [None]
